FAERS Safety Report 7783443-8 (Version None)
Quarter: 2011Q3

REPORT INFORMATION
  Report Type: 
  Country: None (occurrence: None)
  Receive Date: 20110928
  Receipt Date: 20110928
  Transmission Date: 20111222
  Serious: Yes (Death, Life-Threatening, Hospitalization, Disabling)
  Sender: FDA-Public Use
  Company Number: None

PATIENT
  Age: 3 Day
  Sex: Female
  Weight: 3.8 kg

DRUGS (1)
  1. FLOLAN [Suspect]
     Indication: PULMONARY HYPERTENSION
     Dosage: 10-40 NG/KG/MIN
     Route: 055
     Dates: start: 20110712, end: 20110712

REACTIONS (3)
  - BRADYCARDIA [None]
  - PULMONARY HAEMORRHAGE [None]
  - HYPOXIA [None]
